FAERS Safety Report 25975887 (Version 1)
Quarter: 2025Q4

REPORT INFORMATION
  Report Type: Spontaneous
  Country: SA (occurrence: SA)
  Receive Date: 20251029
  Receipt Date: 20251029
  Transmission Date: 20260117
  Serious: Yes (Other)
  Sender: AMGEN
  Company Number: SA-AMGEN-SAUSP2025210345

PATIENT
  Age: 39 Year
  Sex: Male

DRUGS (5)
  1. ADALIMUMAB [Suspect]
     Active Substance: ADALIMUMAB
     Indication: Polychondritis
     Dosage: 40 MILLIGRAM, Q2WK
     Route: 065
  2. PREDNISOLONE [Concomitant]
     Active Substance: PREDNISOLONE
     Dosage: 20 MILLIGRAM, QD
     Route: 048
  3. PREDNISOLONE [Concomitant]
     Active Substance: PREDNISOLONE
     Dosage: 70 MILLIGRAM, QD
     Route: 048
  4. COVID-19 vaccine [Concomitant]
     Indication: COVID-19 immunisation
  5. METHOTREXATE [Concomitant]
     Active Substance: METHOTREXATE
     Dosage: 22.5 MILLIGRAM, QWK

REACTIONS (3)
  - Colitis ulcerative [Recovered/Resolved]
  - Wheezing [Unknown]
  - Off label use [Unknown]
